FAERS Safety Report 6738266-5 (Version None)
Quarter: 2010Q2

REPORT INFORMATION
  Report Type: 
  Country: None (occurrence: None)
  Receive Date: 20100524
  Receipt Date: 20100519
  Transmission Date: 20101027
  Serious: Yes (Other)
  Sender: FDA-Public Use
  Company Number: A0860417A

PATIENT
  Age: 51 Year
  Sex: Female

DRUGS (2)
  1. LAMICTAL [Suspect]
     Indication: BIPOLAR DISORDER
     Dosage: 400TAB PER DAY
     Route: 048
  2. CYMBALTA [Concomitant]

REACTIONS (4)
  - DRUG DEPENDENCE [None]
  - FEELING JITTERY [None]
  - HEART RATE INCREASED [None]
  - TREMOR [None]
